APPROVED DRUG PRODUCT: WARFARIN SODIUM
Active Ingredient: WARFARIN SODIUM
Strength: 6MG
Dosage Form/Route: TABLET;ORAL
Application: A040616 | Product #006 | TE Code: AB
Applicant: PLIVA INC
Approved: Jul 5, 2006 | RLD: No | RS: No | Type: RX